FAERS Safety Report 6307362-9 (Version None)
Quarter: 2009Q3

REPORT INFORMATION
  Report Type: 
  Country: None (occurrence: None)
  Receive Date: 20090813
  Receipt Date: 20090414
  Transmission Date: 20100115
  Serious: Yes (Death, Life-Threatening, Hospitalization)
  Sender: FDA-Public Use
  Company Number: GB-JNJFOC-20090303797

PATIENT
  Age: 49 Year
  Sex: Female

DRUGS (11)
  1. DARUNAVIR [Suspect]
     Indication: HIV INFECTION
     Route: 048
  2. ETRAVIRINE [Suspect]
     Indication: HIV INFECTION
     Route: 048
  3. RALTEGRAVIR [Suspect]
     Indication: HIV INFECTION
     Route: 048
  4. KALETRA [Suspect]
     Indication: HIV INFECTION
     Route: 065
  5. RITONAVIR [Concomitant]
     Indication: HIV INFECTION
  6. ATAZANAVIR [Concomitant]
     Indication: HIV INFECTION
  7. TENOFOVIR [Concomitant]
     Indication: HIV INFECTION
  8. ABACAVIR [Concomitant]
     Indication: HIV INFECTION
  9. AMLODIPINE [Concomitant]
     Route: 065
  10. BENDROFLUMETHIAZIDE [Concomitant]
  11. DICLOFENAC [Concomitant]

REACTIONS (4)
  - ACUTE HAEMORRHAGIC CONJUNCTIVITIS [None]
  - ANAEMIA [None]
  - LIVER FUNCTION TEST ABNORMAL [None]
  - TOXIC EPIDERMAL NECROLYSIS [None]
